FAERS Safety Report 9150168 (Version 1)
Quarter: 2013Q1

REPORT INFORMATION
  Report Type: Report from Study
  Country: US (occurrence: US)
  Receive Date: 20130308
  Receipt Date: 20130308
  Transmission Date: 20140127
  Serious: No
  Sender: FDA-Public Use
  Company Number: US-VERTEX PHARMACEUTICALS INC.-2013-003188

PATIENT
  Sex: Male
  Weight: 89 kg

DRUGS (10)
  1. VX-950 (TELAPREVIR) [Suspect]
     Indication: HEPATITIS C
     Dosage: 750 MG, TID
     Route: 048
  2. PEGASYS [Suspect]
     Indication: HEPATITIS C
     Dosage: 180 MCG/M
  3. RIBAVIRIN [Suspect]
     Indication: HEPATITIS C
     Dosage: 200 MG, UNK
  4. CLONAZEPAM [Concomitant]
     Dosage: 1 MG, UNK
  5. GABAPENTIN [Concomitant]
     Dosage: 100 MG, UNK
  6. SALINE NASAL [Concomitant]
     Dosage: 0.65 %, UNK
  7. SYMBICORT AER [Concomitant]
     Dosage: 160-4.5
  8. ESCITALOPRAM [Concomitant]
     Dosage: 10 MG, UNK
  9. FISH OIL [Concomitant]
  10. MULTIVITAMIN [Concomitant]

REACTIONS (4)
  - Headache [Unknown]
  - Nasal congestion [Unknown]
  - Chills [Unknown]
  - Diarrhoea [Unknown]
